FAERS Safety Report 6943695-0 (Version None)
Quarter: 2010Q3

REPORT INFORMATION
  Report Type: 
  Country: None (occurrence: None)
  Receive Date: 20100826
  Receipt Date: 20100817
  Transmission Date: 20110219
  Serious: Yes (Hospitalization)
  Sender: FDA-Public Use
  Company Number: US-AMGEN-QUU432353

PATIENT

DRUGS (1)
  1. ENBREL [Suspect]
     Route: 064
     Dates: start: 20040501

REACTIONS (1)
  - PREMATURE BABY [None]
